FAERS Safety Report 4563939-2 (Version None)
Quarter: 2005Q1

REPORT INFORMATION
  Report Type: 
  Country: None (occurrence: None)
  Receive Date: 20050128
  Receipt Date: 20050121
  Transmission Date: 20050727
  Serious: Yes (Death, Other)
  Sender: FDA-Public Use
  Company Number: US-JNJFOC-20050105351

PATIENT
  Age: 33 Year
  Sex: Male

DRUGS (2)
  1. FENTANYL [Suspect]
     Indication: INTENTIONAL MISUSE
     Route: 065
  2. ALCOHOL [Suspect]
     Indication: INTENTIONAL MISUSE
     Route: 065

REACTIONS (1)
  - DRUG ABUSER [None]
